FAERS Safety Report 4790215-5 (Version None)
Quarter: 2005Q3

REPORT INFORMATION
  Report Type: 
  Country: None (occurrence: None)
  Receive Date: 20050914
  Receipt Date: 20040907
  Transmission Date: 20060218
  Serious: Yes (Death)
  Sender: FDA-Public Use
  Company Number: 163-20785-04090157

PATIENT
  Age: 60 Year
  Sex: Female

DRUGS (5)
  1. THALOMID [Suspect]
     Indication: METASTATIC RENAL CELL CARCINOMA
     Dosage: SEE IMAGE
     Route: 048
     Dates: start: 20040628
  2. THALOMID [Suspect]
     Indication: METASTATIC RENAL CELL CARCINOMA
     Dosage: SEE IMAGE
     Route: 048
     Dates: start: 20040701
  3. ZOLOFT [Concomitant]
  4. BEXTRA [Concomitant]
  5. TOPROL (METOPROLOL SUCCINATE) [Concomitant]

REACTIONS (7)
  - ASTHENIA [None]
  - CEREBROVASCULAR ACCIDENT [None]
  - DEATH [None]
  - DISEASE PROGRESSION [None]
  - DIZZINESS [None]
  - DYSGEUSIA [None]
  - MENTAL STATUS CHANGES [None]
